FAERS Safety Report 6669749-4 (Version None)
Quarter: 2010Q2

REPORT INFORMATION
  Report Type: 
  Country: None (occurrence: None)
  Receive Date: 20100402
  Receipt Date: 20100322
  Transmission Date: 20101027
  Serious: Yes (Hospitalization, Other)
  Sender: FDA-Public Use
  Company Number: 2010BR0009

PATIENT
  Age: 1 Year
  Sex: Male
  Weight: 10 kg

DRUGS (1)
  1. ORFADIN [Suspect]
     Indication: TYROSINAEMIA
     Dosage: 1 MG/ KG   ORAL
     Route: 048
     Dates: start: 20090101

REACTIONS (6)
  - HAEMOGLOBIN DECREASED [None]
  - HEPATIC ENZYME INCREASED [None]
  - JAUNDICE [None]
  - LIVER TRANSPLANT [None]
  - PLATELET COUNT DECREASED [None]
  - PROTHROMBIN TIME PROLONGED [None]
